FAERS Safety Report 10444471 (Version 1)
Quarter: 2014Q3

REPORT INFORMATION
  Report Type: Spontaneous
  Country: GB (occurrence: GB)
  Receive Date: 20140910
  Receipt Date: 20140910
  Transmission Date: 20150326
  Serious: Yes (Hospitalization, Other)
  Sender: FDA-Public Use
  Company Number: GB-TEVA-506195ISR

PATIENT
  Age: 90 Year
  Sex: Female

DRUGS (13)
  1. HYDROXYZINE [Concomitant]
     Active Substance: HYDROXYZINE\HYDROXYZINE HYDROCHLORIDE
     Dosage: 10 MILLIGRAM DAILY; AT NIGHT
  2. ZOPICLONE [Concomitant]
     Active Substance: ZOPICLONE
     Dosage: 7.5 MILLIGRAM DAILY; AT NIGHT
  3. RAMIPRIL. [Suspect]
     Active Substance: RAMIPRIL
     Dosage: 10 MILLIGRAM DAILY; IN MORNING
     Route: 048
  4. PREDNISOLONE. [Concomitant]
     Active Substance: PREDNISOLONE
     Dosage: 30 MILLIGRAM DAILY; IN MORNING FOR 5 DAYS
     Dates: start: 20110311
  5. PARACETAMOL [Concomitant]
     Active Substance: ACETAMINOPHEN
     Dosage: WHEN REQUIRED
  6. TRAMADOL [Concomitant]
     Active Substance: TRAMADOL
     Dosage: 1-2 TWICE A DAY
  7. FUROSEMIDE. [Suspect]
     Active Substance: FUROSEMIDE
     Dosage: 80 MILLIGRAM DAILY; IN MORNING
     Route: 048
     Dates: end: 20110315
  8. TIOTROPIUM [Concomitant]
     Active Substance: TIOTROPIUM
     Dosage: 18 MICROGRAM DAILY;
  9. DIGOXIN. [Concomitant]
     Active Substance: DIGOXIN
     Dosage: 62.5 MILLIGRAM DAILY; IN MORNING
  10. STRONTIUM RANELATE [Concomitant]
     Active Substance: STRONTIUM RANELATE
     Dosage: 2 GRAM DAILY; AT NIGHT
  11. OXYGEN. [Concomitant]
     Active Substance: OXYGEN
     Dosage: LONG TERM OXYGEN THERAPY - 5 YEARS
  12. AMOXICILLIN. [Concomitant]
     Active Substance: AMOXICILLIN
     Dosage: 1500 MILLIGRAM DAILY;
     Dates: start: 20110311
  13. ASPIRIN. [Concomitant]
     Active Substance: ASPIRIN
     Dosage: 75 MILLIGRAM DAILY;

REACTIONS (1)
  - Renal failure acute [Recovered/Resolved]

NARRATIVE: CASE EVENT DATE: 20110315
